FAERS Safety Report 5577333-9 (Version None)
Quarter: 2007Q4

REPORT INFORMATION
  Report Type: 
  Country: None (occurrence: None)
  Receive Date: 20071228
  Receipt Date: 20071217
  Transmission Date: 20080405
  Serious: Yes (Other)
  Sender: FDA-Public Use
  Company Number: US-PFIZER INC-2007106066

PATIENT
  Sex: Male
  Weight: 85 kg

DRUGS (15)
  1. NEURONTIN [Suspect]
     Indication: FIBROMYALGIA
  2. LORAZEPAM [Concomitant]
  3. OXYCONTIN [Concomitant]
  4. ACTIQ [Concomitant]
  5. SOMA [Concomitant]
  6. DEXAMFETAMINE [Concomitant]
  7. IBANDRONATE SODIUM [Concomitant]
  8. PROCHLORPERAZINE EDISYLATE [Concomitant]
  9. PRIMIDONE [Concomitant]
  10. TOPAMAX [Concomitant]
  11. MIDRIN [Concomitant]
  12. FIORINAL [Concomitant]
  13. DRISDOL [Concomitant]
  14. PRILOSEC [Concomitant]
  15. ACETYLSALICYLIC ACID SRT [Concomitant]

REACTIONS (3)
  - BODY HEIGHT DECREASED [None]
  - DRUG INEFFECTIVE [None]
  - SURGERY [None]
